FAERS Safety Report 4365981-3 (Version None)
Quarter: 2004Q2

REPORT INFORMATION
  Report Type: 
  Country: None (occurrence: None)
  Receive Date: 20040521
  Receipt Date: 20040430
  Transmission Date: 20050107
  Serious: Yes (Life-Threatening)
  Sender: FDA-Public Use
  Company Number: EWC040539127

PATIENT
  Age: 30 Year
  Sex: Female
  Weight: 56 kg

DRUGS (7)
  1. FLUOXETINE [Suspect]
     Indication: DEPRESSION
     Dosage: 20 MG/L
     Dates: start: 20040405, end: 20040410
  2. MANDOLGIN (TRAMADOL) [Concomitant]
  3. PRIMPERAN TAB [Concomitant]
  4. LAMICTAL [Concomitant]
  5. COPAXONE [Concomitant]
  6. BUDESONID [Concomitant]
  7. REMERON [Concomitant]

REACTIONS (13)
  - ANOREXIA [None]
  - ANXIETY [None]
  - DIARRHOEA [None]
  - FATIGUE [None]
  - FEAR [None]
  - FOOD AVERSION [None]
  - METRORRHAGIA [None]
  - NAUSEA [None]
  - PHOBIA [None]
  - POLLAKIURIA [None]
  - SEROTONIN SYNDROME [None]
  - SOMNOLENCE [None]
  - VISUAL DISTURBANCE [None]
